FAERS Safety Report 6453211-8 (Version None)
Quarter: 2009Q4

REPORT INFORMATION
  Report Type: 
  Country: None (occurrence: None)
  Receive Date: 20091123
  Receipt Date: 20091123
  Transmission Date: 20100525
  Serious: Yes (Other)
  Sender: FDA-Public Use
  Company Number: None

PATIENT
  Age: 53 Year
  Sex: Male
  Weight: 90.7194 kg

DRUGS (6)
  1. ZOLPIDEM [Suspect]
     Indication: INSOMNIA
     Dosage: 15 MG DAILY PO
     Route: 048
     Dates: start: 20080101, end: 20091116
  2. MORPHINE SULFATE [Concomitant]
  3. CELEBREX [Concomitant]
  4. PROTONIX [Concomitant]
  5. FENTANYL-100 [Concomitant]
  6. DILAUDID [Concomitant]

REACTIONS (6)
  - ABNORMAL BEHAVIOUR [None]
  - AGGRESSION [None]
  - ANGER [None]
  - MENTAL IMPAIRMENT [None]
  - SOMNAMBULISM [None]
  - THINKING ABNORMAL [None]
